FAERS Safety Report 12888414 (Version 1)
Quarter: 2016Q4

REPORT INFORMATION
  Report Type: Spontaneous
  Country: US (occurrence: US)
  Receive Date: 20161027
  Receipt Date: 20161027
  Transmission Date: 20170207
  Serious: No
  Sender: FDA-Public Use
  Company Number: US-BEH-2016074697

PATIENT
  Sex: Female
  Weight: 78.91 kg

DRUGS (23)
  1. ARMOUR THYROID [Concomitant]
     Active Substance: THYROID, PORCINE
     Route: 065
  2. DIAZEPAM. [Concomitant]
     Active Substance: DIAZEPAM
     Route: 065
  3. LIPITOR [Concomitant]
     Active Substance: ATORVASTATIN CALCIUM
     Route: 065
  4. CYCLOBENZAPRINE [Concomitant]
     Active Substance: CYCLOBENZAPRINE
     Route: 065
  5. DEPLIN [Concomitant]
     Active Substance: LEVOMEFOLATE CALCIUM
     Route: 065
  6. PROAIR HFA [Concomitant]
     Active Substance: ALBUTEROL SULFATE
     Route: 065
  7. ACETAMINOPHEN. [Concomitant]
     Active Substance: ACETAMINOPHEN
     Route: 065
  8. DIPHENHYDRAMINE. [Concomitant]
     Active Substance: DIPHENHYDRAMINE
     Route: 065
  9. EPIPEN [Concomitant]
     Active Substance: EPINEPHRINE
     Route: 065
  10. PERCOCET                           /00446701/ [Concomitant]
     Active Substance: ACETAMINOPHEN\OXYCODONE HYDROCHLORIDE\OXYCODONE TEREPHTHALATE
     Route: 065
  11. PROMETRIUM [Concomitant]
     Active Substance: PROGESTERONE
  12. ATENOLOL/CHLORTHALIDONE [Concomitant]
     Active Substance: ATENOLOL\CHLORTHALIDONE
     Route: 065
  13. OMEPRAZOLE. [Concomitant]
     Active Substance: OMEPRAZOLE
     Route: 065
  14. LIDOCAINE/PRILOCAINE [Concomitant]
     Active Substance: LIDOCAINE\PRILOCAINE
     Route: 065
  15. VIVELLE-DOT [Concomitant]
     Active Substance: ESTRADIOL
     Route: 065
  16. TESTOSTERONE. [Concomitant]
     Active Substance: TESTOSTERONE
     Route: 065
  17. PROGESTERONE. [Concomitant]
     Active Substance: PROGESTERONE
     Route: 065
  18. HIZENTRA [Suspect]
     Active Substance: HUMAN IMMUNOGLOBULIN G
     Indication: MIGRAINE WITHOUT AURA
     Dosage: 6 G, QW
     Route: 058
     Dates: start: 20151118
  19. BOTOX [Concomitant]
     Active Substance: ONABOTULINUMTOXINA
     Route: 065
  20. PROVIGIL [Concomitant]
     Active Substance: MODAFINIL
     Route: 065
  21. AUGMENTIN [Concomitant]
     Active Substance: AMOXICILLIN\CLAVULANATE POTASSIUM
     Route: 065
  22. MORPHINE [Concomitant]
     Active Substance: MORPHINE
     Route: 065
  23. WELLBUTRIN [Concomitant]
     Active Substance: BUPROPION HYDROCHLORIDE
     Route: 065

REACTIONS (1)
  - Blood blister [Unknown]
